FAERS Safety Report 8125411-2 (Version None)
Quarter: 2012Q1

REPORT INFORMATION
  Report Type: 
  Country: None (occurrence: None)
  Receive Date: 20120209
  Receipt Date: 20120206
  Transmission Date: 20120608
  Serious: Yes (Hospitalization)
  Sender: FDA-Public Use
  Company Number: US-MERCK-1112USA02109

PATIENT
  Age: 64 Year
  Sex: Female

DRUGS (3)
  1. ACTONEL [Suspect]
     Indication: OSTEOPOROSIS
     Route: 065
     Dates: start: 20080101, end: 20100301
  2. ACTONEL [Suspect]
     Route: 048
     Dates: start: 20070101
  3. FOSAMAX [Suspect]
     Indication: OSTEOPOROSIS
     Route: 048
     Dates: start: 20080101, end: 20100301

REACTIONS (6)
  - IRON DEFICIENCY ANAEMIA [None]
  - FALL [None]
  - CONSTIPATION [None]
  - HYPOKALAEMIA [None]
  - FEMUR FRACTURE [None]
  - TOOTH DISORDER [None]
